FAERS Safety Report 4717634-7 (Version None)
Quarter: 2005Q3

REPORT INFORMATION
  Report Type: 
  Country: None (occurrence: None)
  Receive Date: 20050713
  Receipt Date: 20050429
  Transmission Date: 20060218
  Serious: Yes (Other)
  Sender: FDA-Public Use
  Company Number: 403697

PATIENT
  Sex: Male

DRUGS (4)
  1. FUZEON [Suspect]
     Indication: DRUG USE FOR UNKNOWN INDICATION
  2. VIREAD [Concomitant]
  3. KALETRA [Concomitant]
  4. LEXIVA [Concomitant]

REACTIONS (2)
  - DIARRHOEA [None]
  - RASH GENERALISED [None]
